FAERS Safety Report 8220513-4 (Version None)
Quarter: 2012Q1

REPORT INFORMATION
  Report Type: 
  Country: None (occurrence: None)
  Receive Date: 20120307
  Receipt Date: 20100414
  Transmission Date: 20120608
  Serious: No
  Sender: FDA-Public Use
  Company Number: PHHY2010US23922

PATIENT

DRUGS (1)
  1. AFINITOR [Suspect]
     Dosage: , ORAL
     Route: 048

REACTIONS (2)
  - FLUSHING [None]
  - BURNING SENSATION [None]
